FAERS Safety Report 12629808 (Version 1)
Quarter: 2016Q3

REPORT INFORMATION
  Report Type: Spontaneous
  Country: FR (occurrence: FR)
  Receive Date: 20160808
  Receipt Date: 20160808
  Transmission Date: 20161109
  Serious: Yes (Hospitalization)
  Sender: FDA-Public Use
  Company Number: FR-PFIZER INC-2016367787

PATIENT
  Age: 64 Year
  Sex: Female

DRUGS (12)
  1. NEORAL [Suspect]
     Active Substance: CYCLOSPORINE
     Indication: RENAL TRANSPLANT
     Dosage: 75 MG, 2X/DAY
     Route: 048
     Dates: start: 20140424
  2. LEVOTHYROX [Concomitant]
     Active Substance: LEVOTHYROXINE
  3. CERTICAN [Suspect]
     Active Substance: EVEROLIMUS
     Indication: RENAL TRANSPLANT
     Dosage: 1 MG, 2X/DAY
     Route: 048
     Dates: start: 20140424
  4. NEORAL [Suspect]
     Active Substance: CYCLOSPORINE
     Dosage: 75 MG, 2X/DAY
     Route: 048
     Dates: start: 2015
  5. SOLUPRED /00016201/ [Suspect]
     Active Substance: PREDNISOLONE
     Indication: RENAL TRANSPLANT
     Dosage: GRADUALLY REDUCED
     Route: 048
     Dates: start: 20140424
  6. BISOPROLOL [Concomitant]
     Active Substance: BISOPROLOL
  7. NEORAL [Suspect]
     Active Substance: CYCLOSPORINE
     Dosage: 125 MG, 2X/DAY
     Route: 048
     Dates: start: 201407
  8. EUPRESSYL /00631801/ [Suspect]
     Active Substance: URAPIDIL
     Indication: HYPERTENSION
     Dosage: 60 MG, 3X/DAY
     Route: 048
     Dates: start: 20140424
  9. TAHOR [Suspect]
     Active Substance: ATORVASTATIN CALCIUM
     Indication: DYSLIPIDAEMIA
     Dosage: 10 MG, 1X/DAY
     Route: 048
     Dates: start: 20141013
  10. AMLODIPINE [Concomitant]
     Active Substance: AMLODIPINE BESYLATE
  11. NEORAL [Suspect]
     Active Substance: CYCLOSPORINE
     Dosage: 60 MG, 2X/DAY
     Route: 048
  12. CACIT VITAMINE D3 [Concomitant]
     Active Substance: CALCIUM CARBONATE\CHOLECALCIFEROL

REACTIONS (1)
  - Pericardial effusion [Not Recovered/Not Resolved]

NARRATIVE: CASE EVENT DATE: 20150414
